FAERS Safety Report 15104177 (Version 1)
Quarter: 2018Q3

REPORT INFORMATION
  Report Type: Spontaneous
  Country: FR (occurrence: FR)
  Receive Date: 20180703
  Receipt Date: 20180703
  Transmission Date: 20181010
  Serious: Yes (Death)
  Sender: FDA-Public Use
  Company Number: FR-PFIZER INC-2018263810

PATIENT
  Sex: Female

DRUGS (3)
  1. IMUREL /00001501/ [Suspect]
     Active Substance: AZATHIOPRINE SODIUM
     Indication: COLITIS
     Dosage: 175 MG, UNK
     Dates: start: 201707
  2. HYDROCORTISONE. [Suspect]
     Active Substance: HYDROCORTISONE
     Dosage: UNK
  3. PENTASA [Suspect]
     Active Substance: MESALAMINE
     Indication: COLITIS
     Dosage: 2 G, UNK
     Dates: start: 201801

REACTIONS (1)
  - Foetal death [Fatal]

NARRATIVE: CASE EVENT DATE: 201804
